FAERS Safety Report 9713715 (Version 1)
Quarter: 2013Q4

REPORT INFORMATION
  Report Type: Spontaneous
  Country: US (occurrence: US)
  Receive Date: 20131126
  Receipt Date: 20131126
  Transmission Date: 20140711
  Serious: Yes (Other)
  Sender: FDA-Public Use
  Company Number: US-PFIZER INC-2013333242

PATIENT
  Age: 57 Year
  Sex: Male
  Weight: 99.77 kg

DRUGS (11)
  1. ATORVASTATIN CALCIUM [Suspect]
     Indication: BLOOD CHOLESTEROL INCREASED
     Dosage: 20 MG, 2X/DAY
     Dates: end: 2013
  2. ATORVASTATIN CALCIUM [Suspect]
     Dosage: 40 MG, 2X/DAY
     Dates: start: 2013
  3. LEVOTHYROXINE [Concomitant]
     Indication: THYROID DISORDER
     Dosage: 150 MG, DAILY
  4. PLAVIX [Concomitant]
     Dosage: UNK
  5. LISINOPRIL [Concomitant]
     Indication: BLOOD PRESSURE ABNORMAL
     Dosage: 40 MG, 2X/DAY
  6. ASPIRIN [Concomitant]
     Dosage: 325 MG, DAILY
  7. CLOPIDOGREL [Concomitant]
     Dosage: 75 MG, DAILY
  8. MATZIM LA [Concomitant]
     Indication: BLOOD PRESSURE ABNORMAL
     Dosage: 360 MG, DAILY
  9. CYANOCOBALAMINE [Concomitant]
     Dosage: 1000 UG/ML, MONTHLY
  10. NITROSTAT [Concomitant]
     Dosage: 4 MG, UNK
  11. VITAMIN D3 [Concomitant]
     Dosage: 2000 IU, UNK

REACTIONS (3)
  - Apparent death [Unknown]
  - Pain in extremity [Unknown]
  - Drug ineffective [Unknown]
